FAERS Safety Report 6786729-9 (Version None)
Quarter: 2010Q2

REPORT INFORMATION
  Report Type: 
  Country: None (occurrence: None)
  Receive Date: 20100623
  Receipt Date: 20100614
  Transmission Date: 20101027
  Serious: Yes (Hospitalization)
  Sender: FDA-Public Use
  Company Number: ES-BAYER-201024948GPV

PATIENT
  Age: 75 Year
  Sex: Female

DRUGS (6)
  1. CIPROFLOXACIN [Suspect]
     Indication: HYPERSENSITIVITY
     Route: 048
     Dates: start: 20080122
  2. RISPERIDONE [Concomitant]
     Indication: DRUG USE FOR UNKNOWN INDICATION
  3. RISPERIDONE [Concomitant]
  4. CEFTRIAXONE [Concomitant]
     Indication: HYPERSENSITIVITY
     Dosage: 1G/24 HOURS
     Route: 042
  5. AMOXICILLIN [Concomitant]
     Indication: BACTERIAL PYELONEPHRITIS
  6. CLAVULANATE POTASSIUM [Concomitant]
     Indication: BACTERIAL PYELONEPHRITIS
     Dosage: 500 MG/ 12 HOURS
     Route: 048

REACTIONS (2)
  - AFFECTIVE DISORDER [None]
  - MANIA [None]
